FAERS Safety Report 8236514-6 (Version None)
Quarter: 2012Q1

REPORT INFORMATION
  Report Type: 
  Country: None (occurrence: None)
  Receive Date: 20120327
  Receipt Date: 20120322
  Transmission Date: 20120608
  Serious: Yes (Death)
  Sender: FDA-Public Use
  Company Number: DE-ASTELLAS-2012EU002312

PATIENT
  Age: 70 Year
  Sex: Male
  Weight: 61 kg

DRUGS (8)
  1. MICAFUNGIN INJECTION [Suspect]
     Indication: SEPTIC SHOCK
     Dosage: 100 MG, UNKNOWN/D
     Route: 065
     Dates: start: 20111020
  2. MICAFUNGIN INJECTION [Suspect]
     Indication: POSTOPERATIVE WOUND INFECTION
  3. RAMIPRIL [Concomitant]
     Dosage: UNK
     Route: 065
     Dates: start: 20111009
  4. PROPOFOL [Concomitant]
     Dosage: UNK
     Route: 065
     Dates: start: 20111019
  5. HEPARIN [Concomitant]
     Dosage: UNK
     Route: 065
     Dates: start: 20111009
  6. NORADRENALIN [Concomitant]
     Dosage: UNK
     Route: 065
     Dates: start: 20111019
  7. DOBUTAMIN [Concomitant]
     Dosage: UNK
     Route: 065
     Dates: start: 20111019
  8. DIGITOXIN [Concomitant]
     Dosage: UNK
     Route: 065
     Dates: start: 20111009

REACTIONS (1)
  - DEATH [None]
